FAERS Safety Report 17895186 (Version 1)
Quarter: 2020Q2

REPORT INFORMATION
  Report Type: Spontaneous
  Country: US (occurrence: US)
  Receive Date: 20200614
  Receipt Date: 20200614
  Transmission Date: 20200714
  Serious: Yes (Life-Threatening, Disabling, Other)
  Sender: FDA-Public Use
  Company Number: None

PATIENT
  Age: 21 Year
  Sex: Male
  Weight: 72 kg

DRUGS (1)
  1. FINASTERIDE 1 MG [Suspect]
     Active Substance: FINASTERIDE

REACTIONS (8)
  - Anxiety [None]
  - Loss of libido [None]
  - Lethargy [None]
  - Depression [None]
  - Feeling abnormal [None]
  - Insomnia [None]
  - Fatigue [None]
  - Sexual dysfunction [None]

NARRATIVE: CASE EVENT DATE: 20200611
